FAERS Safety Report 5503194-X (Version None)
Quarter: 2007Q4

REPORT INFORMATION
  Report Type: 
  Country: None (occurrence: None)
  Receive Date: 20071031
  Receipt Date: 20071023
  Transmission Date: 20080405
  Serious: Yes (Other)
  Sender: FDA-Public Use
  Company Number: GB-AMGEN-US250110

PATIENT
  Sex: Female

DRUGS (1)
  1. ENBREL [Suspect]
     Indication: SPONDYLOARTHROPATHY
     Route: 058

REACTIONS (2)
  - NEPHROTIC SYNDROME [None]
  - RENAL IMPAIRMENT [None]
